FAERS Safety Report 5341387-5 (Version None)
Quarter: 2007Q2

REPORT INFORMATION
  Report Type: 
  Country: None (occurrence: None)
  Receive Date: 20070530
  Receipt Date: 20070518
  Transmission Date: 20071010
  Serious: Yes (Hospitalization)
  Sender: FDA-Public Use
  Company Number: MEDI-0004803

PATIENT
  Age: 15 Month

DRUGS (1)
  1. SYNAGIS [Suspect]
     Indication: ANTIVIRAL PROPHYLAXIS
     Dosage: INTRAMUSCULAR
     Route: 030
     Dates: start: 20060118, end: 20060118

REACTIONS (4)
  - GASTROENTERITIS [None]
  - HEAD INJURY [None]
  - LUNG DISORDER [None]
  - VOMITING [None]
